FAERS Safety Report 6613122-1 (Version None)
Quarter: 2010Q1

REPORT INFORMATION
  Report Type: 
  Country: None (occurrence: None)
  Receive Date: 20100304
  Receipt Date: 20100217
  Transmission Date: 20100710
  Serious: Yes (Hospitalization)
  Sender: FDA-Public Use
  Company Number: IN-RANBAXY-2010RR-31529

PATIENT
  Age: 3 Month
  Sex: Male

DRUGS (7)
  1. ENALAPRIL MALEATE [Suspect]
     Dosage: 0.3 MG/KG, UNK
  2. DIGOXIN [Suspect]
     Dosage: 10 UG/KG, UNK
  3. FUROSEMIDE [Suspect]
     Dosage: 1 MG/KG, UNK
  4. SPIRONOLACTONE [Suspect]
     Dosage: 1 MG/KG, UNK
  5. FUROSEMIDE [Concomitant]
  6. SPIRONOLACTONE [Concomitant]
  7. DIGOXIN [Concomitant]

REACTIONS (5)
  - ATRIOVENTRICULAR DISSOCIATION [None]
  - ELECTROCARDIOGRAM T WAVE AMPLITUDE INCREASED [None]
  - NODAL RHYTHM [None]
  - RENAL FAILURE [None]
  - VENTRICULAR EXTRASYSTOLES [None]
